FAERS Safety Report 8263636-6 (Version None)
Quarter: 2012Q2

REPORT INFORMATION
  Report Type: 
  Country: None (occurrence: None)
  Receive Date: 20120405
  Receipt Date: 20120329
  Transmission Date: 20120825
  Serious: Yes (Life-Threatening, Hospitalization)
  Sender: FDA-Public Use
  Company Number: CA-BAYER-2012-031138

PATIENT
  Age: 35 Year
  Sex: Female

DRUGS (16)
  1. ASPIRIN [Suspect]
     Dosage: 80 MG, QD
     Route: 048
  2. EMPRACET [Concomitant]
  3. GRAVOL TAB [Concomitant]
  4. TYLENOL (CAPLET) [Concomitant]
  5. HEPARIN SODIUM [Concomitant]
  6. STUDY DRUG (NOT SPECIFIED) [Suspect]
     Dosage: UNK
     Route: 042
  7. ATORVASTATIN CALCIUM [Concomitant]
  8. MIDAZOLAM [Concomitant]
  9. CLOPIDOGREL [Suspect]
     Dosage: 75 MG, QD
     Route: 048
  10. ATROPINE [Concomitant]
  11. FENTANYL [Concomitant]
  12. ISOPTIN [Concomitant]
  13. SERAX [Concomitant]
  14. ASPIRIN [Suspect]
     Dosage: 320 MG, ONCE
     Route: 048
  15. CARVEDILOL [Concomitant]
  16. RANITIDINE [Concomitant]

REACTIONS (3)
  - VESSEL PUNCTURE SITE HAEMATOMA [None]
  - PLATELET COUNT DECREASED [None]
  - HAEMOGLOBIN DECREASED [None]
